FAERS Safety Report 9688409 (Version 4)
Quarter: 2014Q2

REPORT INFORMATION
  Report Type: Spontaneous
  Country: IE (occurrence: IE)
  Receive Date: 20131114
  Receipt Date: 20140414
  Transmission Date: 20141212
  Serious: Yes (Other)
  Sender: FDA-Public Use
  Company Number: PHFR2013IE006417

PATIENT
  Age: 47 Year
  Sex: Male

DRUGS (8)
  1. CLOZARIL [Suspect]
     Indication: SCHIZOPHRENIA
     Dosage: 450 MG, UNK
     Route: 048
     Dates: start: 20051004
  2. LAMOTRIGINE [Concomitant]
     Indication: AFFECTIVE DISORDER
     Dosage: 275 MG, UNK (200 MG NOCTE AND 75 MG OD)
     Route: 048
  3. RISPERIDONE [Concomitant]
     Dosage: 1 MG, QD NOCTE
     Route: 048
  4. GLUCOPHAGE [Concomitant]
     Indication: TYPE 2 DIABETES MELLITUS
     Dosage: 500 MG, MANE
     Route: 048
  5. ASPIRINE [Concomitant]
     Dosage: 75 MG,MANE
     Route: 048
  6. PROPRANOLOL [Concomitant]
     Dosage: 20 MG, UNK
     Route: 048
  7. HYOSCINE [Concomitant]
     Dosage: 300 MG, UNK
     Route: 048
  8. SERTRALINE [Concomitant]
     Dosage: 200 MG, UNK
     Route: 048

REACTIONS (1)
  - Differential white blood cell count abnormal [Recovered/Resolved]
